FAERS Safety Report 9272643 (Version 2)
Quarter: 2013Q2

REPORT INFORMATION
  Report Type: Spontaneous
  Country: GB (occurrence: GB)
  Receive Date: 20130506
  Receipt Date: 20130515
  Transmission Date: 20140414
  Serious: Yes (Hospitalization, Other)
  Sender: FDA-Public Use
  Company Number: GB-JNJFOC-2007327285

PATIENT
  Age: 7 Year
  Sex: Male

DRUGS (3)
  1. IBUPROFEN [Suspect]
     Indication: JUVENILE IDIOPATHIC ARTHRITIS
     Dosage: DAILY DOSE TEXT: 10 MG/KG DOSE 8 HOURLY
     Route: 065
  2. DICLOFENAC SODIUM [Suspect]
     Indication: POSTOPERATIVE CARE
     Dosage: DAILY DOSE TEXT: UNSPECIFIED
     Route: 054
  3. INDOMETHACIN [Suspect]
     Indication: JUVENILE IDIOPATHIC ARTHRITIS
     Dosage: DAILY DOSE TEXT: 25 MG 12 HOURLY
     Route: 065

REACTIONS (5)
  - Renal failure acute [Recovered/Resolved]
  - Blood creatinine increased [Recovered/Resolved]
  - Blood urea increased [Recovered/Resolved]
  - Vomiting [Recovered/Resolved]
  - Dehydration [Recovered/Resolved]
